FAERS Safety Report 5459976-6 (Version None)
Quarter: 2007Q3

REPORT INFORMATION
  Report Type: 
  Country: None (occurrence: None)
  Receive Date: 20070919
  Receipt Date: 20070605
  Transmission Date: 20080115
  Serious: Yes (Other)
  Sender: FDA-Public Use
  Company Number: US-ASTRAZENECA-2007UW09619

PATIENT
  Age: 130 Month
  Sex: Male

DRUGS (9)
  1. SEROQUEL [Suspect]
     Indication: BIPOLAR DISORDER
     Route: 048
     Dates: start: 20051101
  2. SEROQUEL [Suspect]
     Indication: DEPRESSION
     Route: 048
     Dates: start: 20051101
  3. SEROQUEL [Suspect]
     Indication: SCHIZOPHRENIA
     Route: 048
     Dates: start: 20051101
  4. RISPERDAL [Suspect]
     Indication: BIPOLAR DISORDER
     Dates: start: 20051101
  5. RISPERDAL [Suspect]
     Indication: DEPRESSION
     Dates: start: 20051101
  6. RISPERDAL [Suspect]
     Indication: SCHIZOPHRENIA
     Dates: start: 20051101
  7. ZYPREXA [Concomitant]
     Indication: BIPOLAR DISORDER
     Dates: start: 20020123, end: 20050101
  8. ZYPREXA [Concomitant]
     Indication: DEPRESSION
     Dates: start: 20020123, end: 20050101
  9. ZYPREXA [Concomitant]
     Indication: SCHIZOPHRENIA
     Dates: start: 20020123, end: 20050101

REACTIONS (2)
  - PANCREATITIS ACUTE [None]
  - TYPE 2 DIABETES MELLITUS [None]
